FAERS Safety Report 23068585 (Version 1)
Quarter: 2023Q4

REPORT INFORMATION
  Report Type: Spontaneous
  Country: DE (occurrence: DE)
  Receive Date: 20231016
  Receipt Date: 20231016
  Transmission Date: 20240109
  Serious: Yes (Other)
  Sender: FDA-Public Use
  Company Number: None

PATIENT
  Age: 79 Year
  Sex: Male

DRUGS (3)
  1. IBUPROFEN [Suspect]
     Active Substance: IBUPROFEN
     Indication: Product used for unknown indication
     Dosage: 600 MILLIGRAM, TID, THERAPY START DATES : APPROX. 5 OR 6 WEEKS AGO END DATES : APPROX.3 WEEKS AGO
  2. IBUPROFEN [Suspect]
     Active Substance: IBUPROFEN
     Dosage: PT TOOK 1XIBUPROFEN 600 MG (TOTAL), FREQUENCY : 1 IN FREQUENCY TIME : 1 FREQUENCY TIME UNIT : TOTAL
     Dates: start: 20230323
  3. BUDESONIDE [Suspect]
     Active Substance: BUDESONIDE
     Indication: Radiotherapy to prostate
     Dosage: DURATION TEXT :5-6 WEEKS DAILY DOSE TEXT : ONCE OR TWICE A DAY (MORE OFTEN 2 TIMES/DAY)

REACTIONS (1)
  - Haematochezia [Not Recovered/Not Resolved]

NARRATIVE: CASE EVENT DATE: 20230324
